FAERS Safety Report 4954976-4 (Version None)
Quarter: 2006Q1

REPORT INFORMATION
  Report Type: 
  Country: None (occurrence: None)
  Receive Date: 20060327
  Receipt Date: 20060306
  Transmission Date: 20060701
  Serious: Yes (Hospitalization, Other)
  Sender: FDA-Public Use
  Company Number: US-SANOFI-SYNTHELABO-F01200600650

PATIENT
  Sex: Male

DRUGS (4)
  1. OXALIPLATIN [Suspect]
     Indication: COLORECTAL CANCER METASTATIC
     Dosage: UNKNOWN DOSE
     Route: 065
  2. FLUOROURACIL [Suspect]
     Dosage: UNKNOWN DOSE
     Route: 065
  3. LEUCOVORIN [Suspect]
     Route: 065
  4. BEVACIZUMAB OR PLACEBO [Suspect]
     Route: 042
     Dates: start: 20051025, end: 20051026

REACTIONS (2)
  - ASCITES [None]
  - MENTAL STATUS CHANGES [None]
